FAERS Safety Report 12788382 (Version 1)
Quarter: 2016Q3

REPORT INFORMATION
  Report Type: Spontaneous
  Country: US (occurrence: US)
  Receive Date: 20160928
  Receipt Date: 20160928
  Transmission Date: 20161109
  Serious: Yes (Other)
  Sender: FDA-Public Use
  Company Number: PHEH2016US024561

PATIENT
  Sex: Male

DRUGS (1)
  1. PROMACTA [Suspect]
     Active Substance: ELTROMBOPAG OLAMINE
     Indication: MYELODYSPLASTIC SYNDROME
     Dosage: 100 MG, QD
     Route: 048
     Dates: start: 20160824, end: 20160922

REACTIONS (1)
  - Drug ineffective [Unknown]
